FAERS Safety Report 15717124 (Version 1)
Quarter: 2018Q4

REPORT INFORMATION
  Report Type: Spontaneous
  Country: IR (occurrence: IR)
  Receive Date: 20181213
  Receipt Date: 20181213
  Transmission Date: 20190205
  Serious: Yes (Death, Other)
  Sender: FDA-Public Use
  Company Number: IR-FRESENIUS KABI-FK201812636

PATIENT
  Age: 30 Year
  Sex: Female

DRUGS (4)
  1. CHORIONIC GONADOTROPIN [Suspect]
     Active Substance: CHORIOGONADOTROPIN ALFA
     Indication: INFERTILITY
     Dosage: 5000
     Route: 065
  2. MENOTROPHIN [Suspect]
     Active Substance: MENOTROPINS
     Dosage: 75 IU EVERY OTHER DAY
     Route: 065
  3. MENOTROPHIN [Suspect]
     Active Substance: MENOTROPINS
     Indication: INFERTILITY
     Dosage: 225 IU PER DAY FOR 6 DAYS
     Route: 065
  4. CABERGOLINE. [Suspect]
     Active Substance: CABERGOLINE
     Indication: INFERTILITY
     Dosage: 0,5 MG TWICE PER WEEK
     Route: 065

REACTIONS (4)
  - Duodenal ulcer perforation [Fatal]
  - Haematuria [Unknown]
  - Ovarian hyperstimulation syndrome [Fatal]
  - Disseminated intravascular coagulation [Unknown]
